FAERS Safety Report 17201629 (Version 1)
Quarter: 2020Q1

REPORT INFORMATION
  Report Type: Spontaneous
  Country: US (occurrence: US)
  Receive Date: 20191224
  Receipt Date: 20191224
  Transmission Date: 20200409
  Serious: Yes (Death)
  Sender: FDA-Public Use
  Company Number: None

PATIENT
  Age: 80 Year
  Sex: Female
  Weight: 84 kg

DRUGS (6)
  1. OMEPRAZOLE 20MG [Concomitant]
     Active Substance: OMEPRAZOLE
  2. ASPIRIN 81MG [Concomitant]
     Active Substance: ASPIRIN
  3. FOLIC ACID 1MG [Concomitant]
     Active Substance: FOLIC ACID
  4. CRIZOTINIB [Suspect]
     Active Substance: CRIZOTINIB
     Indication: NON-SMALL CELL LUNG CANCER
     Route: 048
     Dates: start: 20191003, end: 20191031
  5. ATORVASTATIN 40MG [Concomitant]
     Active Substance: ATORVASTATIN
  6. CALCIUM 600MG [Concomitant]

REACTIONS (1)
  - Hepatic failure [None]

NARRATIVE: CASE EVENT DATE: 20191108
